FAERS Safety Report 4336192-2 (Version None)
Quarter: 2004Q2

REPORT INFORMATION
  Report Type: 
  Country: None (occurrence: None)
  Receive Date: 20040407
  Receipt Date: 20040325
  Transmission Date: 20050107
  Serious: Yes (Hospitalization, Other)
  Sender: FDA-Public Use
  Company Number: RGD:54756/425

PATIENT
  Age: 40 Year
  Sex: Female

DRUGS (2)
  1. LEVONORGESTREL [Suspect]
     Indication: POST COITAL CONTRACEPTION
     Dosage: 750 UG, 2 DOSES, ORAL
     Route: 048
     Dates: start: 20031010
  2. FLUOXETINE [Concomitant]

REACTIONS (5)
  - ABDOMINAL PAIN UPPER [None]
  - BILE DUCT STONE [None]
  - BLOOD ALKALINE PHOSPHATASE INCREASED [None]
  - POST PROCEDURAL COMPLICATION [None]
  - VOMITING [None]
